FAERS Safety Report 6418307-5 (Version None)
Quarter: 2009Q4

REPORT INFORMATION
  Report Type: 
  Country: None (occurrence: None)
  Receive Date: 20091021
  Receipt Date: 20090617
  Transmission Date: 20100525
  Serious: No
  Sender: FDA-Public Use
  Company Number: ALL1-2009-01685

PATIENT
  Age: 47 Year
  Sex: Female
  Weight: 86.2 kg

DRUGS (1)
  1. VYVANSE [Suspect]
     Indication: ATTENTION DEFICIT/HYPERACTIVITY DISORDER
     Dosage: 40 MG, 1X/DAY:QD, ORAL
     Route: 048
     Dates: start: 20090601

REACTIONS (12)
  - BLOOD PRESSURE INCREASED [None]
  - DECREASED APPETITE [None]
  - DIARRHOEA [None]
  - DRY MOUTH [None]
  - FAECES PALE [None]
  - FREQUENT BOWEL MOVEMENTS [None]
  - HEART RATE INCREASED [None]
  - MUSCLE TIGHTNESS [None]
  - MUSCLE TWITCHING [None]
  - PARAESTHESIA [None]
  - TREMOR [None]
  - VISION BLURRED [None]
